FAERS Safety Report 7523563-6 (Version None)
Quarter: 2011Q2

REPORT INFORMATION
  Report Type: 
  Country: None (occurrence: None)
  Receive Date: 20110603
  Receipt Date: 20110526
  Transmission Date: 20111010
  Serious: Yes (Hospitalization)
  Sender: FDA-Public Use
  Company Number: US-PERRIGO-11US004378

PATIENT
  Age: 36 Year
  Sex: Female

DRUGS (1)
  1. ACETAMINOPHEN [Suspect]
     Indication: PRODUCT USED FOR UNKNOWN INDICATION
     Dosage: 40-60 G, SINGLE
     Route: 048

REACTIONS (9)
  - OVERDOSE [None]
  - BRAIN OEDEMA [None]
  - MULTI-ORGAN FAILURE [None]
  - COMA [None]
  - COAGULOPATHY [None]
  - INTRAVENTRICULAR HAEMORRHAGE [None]
  - CEREBRAL HAEMORRHAGE [None]
  - ACUTE HEPATIC FAILURE [None]
  - HEPATIC ENCEPHALOPATHY [None]
